FAERS Safety Report 7867589-1 (Version None)
Quarter: 2011Q4

REPORT INFORMATION
  Report Type: 
  Country: None (occurrence: None)
  Receive Date: 20111028
  Receipt Date: 20111020
  Transmission Date: 20120403
  Serious: Yes (Other)
  Sender: FDA-Public Use
  Company Number: PHHY2011US02872

PATIENT
  Sex: Female

DRUGS (1)
  1. GILENYA [Suspect]
     Indication: MULTIPLE SCLEROSIS
     Dosage: 0.5 MG, DAILY
     Route: 048
     Dates: start: 20110111

REACTIONS (5)
  - RASH [None]
  - CHEST PAIN [None]
  - BLOOD PRESSURE DECREASED [None]
  - FATIGUE [None]
  - BUTTERFLY RASH [None]
